FAERS Safety Report 5487802-8 (Version None)
Quarter: 2007Q3

REPORT INFORMATION
  Report Type: 
  Country: None (occurrence: None)
  Receive Date: 20070925
  Receipt Date: 20070626
  Transmission Date: 20080115
  Serious: No
  Sender: FDA-Public Use
  Company Number: 2007US000995

PATIENT
  Sex: Female

DRUGS (4)
  1. VESICARE [Suspect]
     Indication: POLLAKIURIA
     Dosage: 5 MG, UID/QD
  2. SYNTHROID [Concomitant]
  3. ZIAC [Concomitant]
  4. DAYPRO [Concomitant]

REACTIONS (1)
  - DRY MOUTH [None]
